FAERS Safety Report 6670041-2 (Version None)
Quarter: 2010Q2

REPORT INFORMATION
  Report Type: 
  Country: None (occurrence: None)
  Receive Date: 20100405
  Receipt Date: 20100323
  Transmission Date: 20101027
  Serious: Yes (Disabling)
  Sender: FDA-Public Use
  Company Number: 1000012909

PATIENT
  Age: 58 Year
  Sex: Female
  Weight: 72 kg

DRUGS (5)
  1. ESCITALOPRAM [Suspect]
     Indication: DEPRESSION
     Dosage: (10 MG), ORAL
     Route: 048
     Dates: start: 20070803, end: 20081203
  2. TERBINAFINE HCL [Suspect]
     Indication: ONYCHOMYCOSIS
     Dosage: 250 MG (250 MG, 1 IN 1 D),ORAL
     Route: 048
     Dates: start: 20070802, end: 20090101
  3. SERTRALINE HCL [Suspect]
     Indication: DEPRESSION
     Dosage: 50 MG (50 MG, 1 IN 1 D),ORAL
     Dates: start: 20081203, end: 20091001
  4. ZOVIR (TABLETS) [Concomitant]
  5. SYMBICORT [Concomitant]

REACTIONS (7)
  - BACK PAIN [None]
  - DRUG INTERACTION [None]
  - IMPAIRED WORK ABILITY [None]
  - MUSCULOSKELETAL PAIN [None]
  - MYOPATHY [None]
  - OEDEMA PERIPHERAL [None]
  - POLYNEUROPATHY [None]
